FAERS Safety Report 25323034 (Version 1)
Quarter: 2025Q2

REPORT INFORMATION
  Report Type: Spontaneous
  Country: IN (occurrence: IN)
  Receive Date: 20250516
  Receipt Date: 20250516
  Transmission Date: 20250717
  Serious: Yes (Death)
  Sender: ROCHE
  Company Number: IN-ROCHE-10000163907

PATIENT
  Age: 52 Year
  Sex: Female

DRUGS (1)
  1. TECENTRIQ [Suspect]
     Active Substance: ATEZOLIZUMAB
     Indication: Mixed hepatocellular cholangiocarcinoma
     Route: 042
     Dates: start: 20241215

REACTIONS (2)
  - Off label use [Unknown]
  - Blood bilirubin increased [Fatal]

NARRATIVE: CASE EVENT DATE: 20241215
